FAERS Safety Report 5619440-8 (Version None)
Quarter: 2008Q2

REPORT INFORMATION
  Report Type: 
  Country: None (occurrence: None)
  Receive Date: 20080109
  Receipt Date: 20061207
  Transmission Date: 20081010
  Serious: Yes (Hospitalization)
  Sender: FDA-Public Use
  Company Number: WAES 0602USA05214

PATIENT
  Age: 45 Year
  Sex: Male

DRUGS (5)
  1. ZETIA [Suspect]
     Indication: BLOOD CHOLESTEROL INCREASED
     Dosage: 10 MG/DAILY/PO
     Route: 048
     Dates: start: 20050222, end: 20060217
  2. PROPECIA [Concomitant]
  3. CALCIUM GLUCONATE [Concomitant]
  4. GLUCOSAMINE [Concomitant]
  5. VITAMINS (UNSPECIFIED) [Concomitant]

REACTIONS (5)
  - FLATULENCE [None]
  - MYOPATHY [None]
  - RASH [None]
  - RHABDOMYOLYSIS [None]
  - SINUSITIS [None]
